FAERS Safety Report 13060701 (Version 1)
Quarter: 2016Q4

REPORT INFORMATION
  Report Type: Spontaneous
  Country: US (occurrence: US)
  Receive Date: 20161225
  Receipt Date: 20161225
  Transmission Date: 20170207
  Serious: Yes (Hospitalization, Other)
  Sender: FDA-Public Use
  Company Number: US-ASTRAZENECA-2016SF34339

PATIENT
  Age: 20607 Day
  Sex: Male
  Weight: 59 kg

DRUGS (2)
  1. VENTOLIN [Concomitant]
     Active Substance: ALBUTEROL SULFATE
     Indication: PRODUCT USED FOR UNKNOWN INDICATION
     Dosage: 90.0UG AS REQUIRED
     Route: 055
     Dates: start: 2013
  2. SYMBICORT [Suspect]
     Active Substance: BUDESONIDE\FORMOTEROL FUMARATE DIHYDRATE
     Indication: CHRONIC OBSTRUCTIVE PULMONARY DISEASE
     Route: 055
     Dates: start: 2013

REACTIONS (7)
  - Weight decreased [Unknown]
  - Coma [Unknown]
  - Cardiac failure congestive [Unknown]
  - Bronchitis [Unknown]
  - Pneumonia [Unknown]
  - Cyanosis [Unknown]
  - Device failure [Unknown]

NARRATIVE: CASE EVENT DATE: 201611
